FAERS Safety Report 11228883 (Version 1)
Quarter: 2015Q2

REPORT INFORMATION
  Report Type: Spontaneous
  Country: US (occurrence: US)
  Receive Date: 20150630
  Receipt Date: 20150630
  Transmission Date: 20150821
  Serious: Yes (Death, Hospitalization, Other)
  Sender: FDA-Public Use
  Company Number: US-B.I. PHARMACEUTICALS,INC./RIDGEFIELD-2015-BI-34187BP

PATIENT
  Age: 68 Year
  Sex: Male
  Weight: 40.82 kg

DRUGS (6)
  1. OMEPRAZOLE. [Concomitant]
     Active Substance: OMEPRAZOLE
     Indication: DYSPEPSIA
     Route: 048
  2. SPIRIVA [Suspect]
     Active Substance: TIOTROPIUM BROMIDE MONOHYDRATE
     Indication: CHRONIC OBSTRUCTIVE PULMONARY DISEASE
     Dosage: 18 MCG
     Route: 055
     Dates: start: 2013
  3. SYMBICORT [Concomitant]
     Active Substance: BUDESONIDE\FORMOTEROL FUMARATE DIHYDRATE
     Indication: CHRONIC OBSTRUCTIVE PULMONARY DISEASE
     Route: 055
  4. BIDIL [Concomitant]
     Active Substance: HYDRALAZINE HYDROCHLORIDE\ISOSORBIDE DINITRATE
     Indication: VEIN DISORDER
     Route: 048
  5. DIOVAN [Concomitant]
     Active Substance: VALSARTAN
     Indication: HYPERTENSION
     Route: 048
  6. PLAVIX [Concomitant]
     Active Substance: CLOPIDOGREL BISULFATE
     Indication: VASCULAR GRAFT
     Dosage: 75 MG
     Route: 048

REACTIONS (10)
  - Hepatic cancer [Fatal]
  - Abasia [Fatal]
  - Lung neoplasm malignant [Fatal]
  - Pneumonia [Recovered/Resolved]
  - Brain neoplasm malignant [Fatal]
  - Neoplasm progression [Fatal]
  - Rash [Recovered/Resolved]
  - Pruritus generalised [Recovered/Resolved]
  - Muscular weakness [Fatal]
  - Skin disorder [Unknown]

NARRATIVE: CASE EVENT DATE: 201401
